FAERS Safety Report 12590259 (Version 1)
Quarter: 2016Q3

REPORT INFORMATION
  Report Type: Spontaneous
  Country: US (occurrence: US)
  Receive Date: 20160725
  Receipt Date: 20160725
  Transmission Date: 20161109
  Serious: No
  Sender: FDA-Public Use
  Company Number: US-ASTRAZENECA-2016SE77651

PATIENT
  Sex: Female

DRUGS (2)
  1. ASPIRIN (COATED) [Concomitant]
     Route: 048
  2. BRILINTA [Suspect]
     Active Substance: TICAGRELOR
     Indication: MYOCARDIAL INFARCTION
     Route: 048
     Dates: start: 201506

REACTIONS (4)
  - Back pain [Unknown]
  - Haemorrhage [Unknown]
  - Abdominal discomfort [Unknown]
  - Contusion [Unknown]
